FAERS Safety Report 23693749 (Version 1)
Quarter: 2024Q1

REPORT INFORMATION
  Report Type: Spontaneous
  Country: US (occurrence: None)
  Receive Date: 20240331
  Receipt Date: 20240331
  Transmission Date: 20240410
  Serious: No
  Sender: FDA-Public Use
  Company Number: None

PATIENT
  Age: 58 Year
  Sex: Male
  Weight: 96.75 kg

DRUGS (1)
  1. CARBOXYMETHYLCELLULOSE\LIDOCAINE\SILICONE [Suspect]
     Active Substance: CARBOXYMETHYLCELLULOSE\LIDOCAINE\SILICONE
     Dates: start: 20240212, end: 20240315

REACTIONS (3)
  - Off label use [None]
  - Product formulation issue [None]
  - Product compounding quality issue [None]

NARRATIVE: CASE EVENT DATE: 20240302
